FAERS Safety Report 4405592-4 (Version None)
Quarter: 2004Q3

REPORT INFORMATION
  Report Type: 
  Country: None (occurrence: None)
  Receive Date: 20040723
  Receipt Date: 20031010
  Transmission Date: 20050211
  Serious: No
  Sender: FDA-Public Use
  Company Number: US-GLAXOSMITHKLINE-A0429803A

PATIENT
  Sex: Female

DRUGS (13)
  1. AVANDIA [Suspect]
     Dosage: 4MG PER DAY
     Route: 048
     Dates: start: 20031009
  2. AMARYL [Concomitant]
  3. K-DUR 10 [Concomitant]
  4. NORVASC [Concomitant]
  5. LANOXIN [Concomitant]
  6. TENORMIN [Concomitant]
  7. HYZAAR [Concomitant]
  8. LOPID [Concomitant]
  9. ASPIRIN [Concomitant]
  10. CALTRATE [Concomitant]
  11. VITAMIN E [Concomitant]
  12. VITAMIN C [Concomitant]
  13. MULTI-VITAMIN [Concomitant]

REACTIONS (2)
  - BLOOD PRESSURE INCREASED [None]
  - WHEEZING [None]
